FAERS Safety Report 10079035 (Version 1)
Quarter: 2014Q2

REPORT INFORMATION
  Report Type: Spontaneous
  Country: US (occurrence: None)
  Receive Date: 20140411
  Receipt Date: 20140411
  Transmission Date: 20141212
  Serious: Yes (Other)
  Sender: FDA-Public Use
  Company Number: None

PATIENT
  Age: 39 Year
  Sex: Female

DRUGS (1)
  1. MIRVASO [Suspect]
     Indication: ROSACEA
     Dosage: PEA SIZED AMOUNT TWICE DAILY. APPLIED TO A SURFACE, USUALLY THE SKIN
     Dates: start: 20140401, end: 20140404

REACTIONS (4)
  - Flushing [None]
  - Pain [None]
  - Rash pustular [None]
  - Cardiac disorder [None]
